FAERS Safety Report 5159020-4 (Version None)
Quarter: 2006Q4

REPORT INFORMATION
  Report Type: 
  Country: None (occurrence: None)
  Receive Date: 20061117
  Receipt Date: 20061107
  Transmission Date: 20070319
  Serious: Yes (Other)
  Sender: FDA-Public Use
  Company Number: GXKR2006BE07147

PATIENT
  Age: 34 Year
  Sex: Male

DRUGS (1)
  1. ITRACONAZOLE [Suspect]
     Indication: FUNGAL SKIN INFECTION
     Dosage: 400 MG, QD; ORAL; 100 MG, QD; ORAL
     Route: 048

REACTIONS (6)
  - CONDITION AGGRAVATED [None]
  - FUNGAL SKIN INFECTION [None]
  - MALAISE [None]
  - POST INFLAMMATORY PIGMENTATION CHANGE [None]
  - PYREXIA [None]
  - SKIN HYPERPIGMENTATION [None]
